FAERS Safety Report 9981109 (Version 2)
Quarter: 2014Q1

REPORT INFORMATION
  Report Type: Spontaneous
  Country: US (occurrence: US)
  Receive Date: 20140307
  Receipt Date: 20140331
  Transmission Date: 20141002
  Serious: No
  Sender: FDA-Public Use
  Company Number: US-PFIZER INC-2014062284

PATIENT
  Age: 44 Year
  Sex: Female

DRUGS (11)
  1. ZITHROMAX [Suspect]
     Dosage: UNK
  2. ADVIL [Suspect]
     Dosage: UNK
  3. CLINDAMYCIN HCL [Suspect]
     Dosage: UNK
  4. ERYTHROMYCIN [Suspect]
     Dosage: UNK
  5. ZOMIG [Suspect]
     Dosage: UNK
  6. KEFLEX [Suspect]
     Dosage: UNK
  7. MOBIC [Suspect]
     Dosage: UNK
  8. LODINE [Suspect]
     Dosage: UNK
  9. LORTAB [Suspect]
     Dosage: UNK
  10. DARVOCET [Suspect]
     Dosage: UNK
  11. NAPROSYN [Suspect]
     Dosage: UNK

REACTIONS (4)
  - Drug hypersensitivity [Unknown]
  - Drug intolerance [Unknown]
  - Nausea [Unknown]
  - Vomiting [Unknown]
